FAERS Safety Report 24231792 (Version 1)
Quarter: 2024Q3

REPORT INFORMATION
  Report Type: Spontaneous
  Country: IT (occurrence: IT)
  Receive Date: 20240821
  Receipt Date: 20240821
  Transmission Date: 20241016
  Serious: Yes (Hospitalization, Other)
  Sender: BAXTER
  Company Number: None

PATIENT
  Age: 67 Year
  Sex: Male
  Weight: 76 kg

DRUGS (7)
  1. METRONIDAZOLE [Suspect]
     Active Substance: METRONIDAZOLE
     Indication: Brain abscess
     Dosage: (DOSAGE TEXT: 500MG/100ML BOTTLES X 4/DAY)
     Route: 042
     Dates: start: 20240426, end: 20240628
  2. CEFTRIAXONE [Concomitant]
     Active Substance: CEFTRIAXONE\CEFTRIAXONE SODIUM
     Indication: Brain abscess
     Dosage: CEFTRIAXONE MYLAN GENERICS (DOSAGE TEXT: 2G BOTTLES X2VV/DAY)
     Route: 041
     Dates: start: 20240421, end: 20240628
  3. VALPROATE SODIUM [Concomitant]
     Active Substance: VALPROATE SODIUM
     Dosage: 500 MG
     Route: 065
     Dates: start: 20240430
  4. LACOSAMIDE [Concomitant]
     Active Substance: LACOSAMIDE
     Indication: Epilepsy
     Dosage: (DOSAGE TEXT: 200MG X2/DAY UNTIL 05/07/24 THEN 150MG X2/DAY)
     Route: 048
     Dates: start: 20240423
  5. LACOSAMIDE [Concomitant]
     Active Substance: LACOSAMIDE
     Indication: Epilepsy
  6. CLOBAZAM [Concomitant]
     Active Substance: CLOBAZAM
     Indication: Epilepsy
     Dosage: (DOSAGE TEXT: 10MG X3/DAY)
     Route: 048
     Dates: start: 20240425
  7. CLOBAZAM [Concomitant]
     Active Substance: CLOBAZAM
     Indication: Epilepsy

REACTIONS (1)
  - Toxic encephalopathy [Recovering/Resolving]

NARRATIVE: CASE EVENT DATE: 20240613
